FAERS Safety Report 18349621 (Version 2)
Quarter: 2020Q4

REPORT INFORMATION
  Report Type: Spontaneous
  Country: US (occurrence: US)
  Receive Date: 20201006
  Receipt Date: 20201023
  Transmission Date: 20210114
  Serious: No
  Sender: FDA-Public Use
  Company Number: US-VERTEX PHARMACEUTICALS-2020-019471

PATIENT
  Age: 26 Year
  Sex: Female

DRUGS (12)
  1. CAYSTON [Concomitant]
     Active Substance: AZTREONAM
  2. VENTOLIN HFA [Concomitant]
     Active Substance: ALBUTEROL SULFATE
  3. LANTUS [Concomitant]
     Active Substance: INSULIN GLARGINE
  4. AZITHROMYCIN ANHYDROUS. [Concomitant]
     Active Substance: AZITHROMYCIN ANHYDROUS
  5. PULMOZYME [Concomitant]
     Active Substance: DORNASE ALFA
  6. CREON [Concomitant]
     Active Substance: PANCRELIPASE AMYLASE\PANCRELIPASE LIPASE\PANCRELIPASE PROTEASE
  7. PREDNISONE. [Concomitant]
     Active Substance: PREDNISONE
  8. HUMALOG [Concomitant]
     Active Substance: INSULIN LISPRO
  9. TRIKAFTA [Suspect]
     Active Substance: ELEXACAFTOR\IVACAFTOR\TEZACAFTOR
     Indication: CYSTIC FIBROSIS
     Dosage: 2 ORANGE TABS (100 MG ELEXA/ 50 MG TEZA/ 75 MG IVA) IN AM AND 1 BLUE TAB (150 MG IVA) IN PM
     Route: 048
     Dates: start: 20200220
  10. TOBRAMYCIN. [Concomitant]
     Active Substance: TOBRAMYCIN
  11. IBUPROFEN. [Concomitant]
     Active Substance: IBUPROFEN
  12. EXCEDRIN [CAFFEINE;PARACETAMOL] [Concomitant]
     Active Substance: ACETAMINOPHEN\CAFFEINE

REACTIONS (1)
  - Acne cystic [Unknown]

NARRATIVE: CASE EVENT DATE: 202002
